FAERS Safety Report 9310709 (Version 1)
Quarter: 2013Q2

REPORT INFORMATION
  Report Type: Report from Study
  Country: ES (occurrence: ES)
  Receive Date: 20130527
  Receipt Date: 20130527
  Transmission Date: 20140414
  Serious: Yes (Life-Threatening, Hospitalization, Other)
  Sender: FDA-Public Use
  Company Number: ES-INCYTE CORPORATION-2013IN000999

PATIENT
  Age: 75 Year
  Sex: Male
  Weight: 80 kg

DRUGS (3)
  1. INC424 [Suspect]
     Dosage: 20 MG, BID
     Dates: start: 20120402
  2. INC424 [Suspect]
     Dosage: 10 MG, BID
     Dates: start: 20120809
  3. INC424 [Suspect]
     Dosage: 05 MG, BID
     Dates: start: 20120904, end: 20130307

REACTIONS (3)
  - Portal hypertension [Not Recovered/Not Resolved]
  - Oesophageal varices haemorrhage [Recovered/Resolved]
  - Platelet count decreased [Unknown]
